FAERS Safety Report 17359665 (Version 1)
Quarter: 2020Q1

REPORT INFORMATION
  Report Type: Report from Study
  Country: JP (occurrence: JP)
  Receive Date: 20200203
  Receipt Date: 20200203
  Transmission Date: 20200409
  Serious: Yes (Death, Other)
  Sender: FDA-Public Use
  Company Number: JP-ROCHE-2534608

PATIENT
  Age: 67 Year
  Sex: Male
  Weight: 60 kg

DRUGS (1)
  1. ATEZOLIZUMAB. [Suspect]
     Active Substance: ATEZOLIZUMAB
     Indication: LUNG ADENOCARCINOMA
     Route: 041
     Dates: start: 20180831, end: 20181012

REACTIONS (3)
  - Infection [Fatal]
  - Liver disorder [Recovered/Resolved]
  - Altered state of consciousness [Fatal]

NARRATIVE: CASE EVENT DATE: 20181002
